FAERS Safety Report 5895538-4 (Version None)
Quarter: 2008Q3

REPORT INFORMATION
  Report Type: 
  Country: None (occurrence: None)
  Receive Date: 20080820
  Receipt Date: 20080522
  Transmission Date: 20090109
  Serious: Yes (Other)
  Sender: FDA-Public Use
  Company Number: DSA_62135_2008

PATIENT
  Sex: Male
  Weight: 43.0917 kg

DRUGS (4)
  1. DIASTAT [Suspect]
     Indication: CONVULSION
     Dosage: (10 MG RECTAL)
     Route: 054
  2. KLONOPIN [Concomitant]
  3. TOPAMAX [Concomitant]
  4. TENEX [Concomitant]

REACTIONS (2)
  - CONVULSION [None]
  - PHARMACEUTICAL PRODUCT COMPLAINT [None]
